FAERS Safety Report 22282613 (Version 2)
Quarter: 2023Q2

REPORT INFORMATION
  Report Type: Spontaneous
  Country: JP (occurrence: JP)
  Receive Date: 20230504
  Receipt Date: 20230608
  Transmission Date: 20230721
  Serious: Yes (Other)
  Sender: FDA-Public Use
  Company Number: JP-SUNPHARMA-2023R1-386035AA

PATIENT
  Age: 11 Year
  Sex: Female
  Weight: 20 kg

DRUGS (10)
  1. TIZANIDINE [Suspect]
     Active Substance: TIZANIDINE
     Indication: Cerebral palsy
     Dosage: 1 MG PER TIME, 3 TIMES AFTER EACH MEAL, BEFORE BEDTIME, AND AT 1 A.M.
     Dates: start: 2014
  2. LIORESAL [Concomitant]
     Active Substance: BACLOFEN
     Indication: Product used for unknown indication
     Dosage: UNK
     Route: 048
  3. DEPAKENE FINE GRANULES [Concomitant]
     Indication: Product used for unknown indication
     Dosage: UNK
     Route: 048
  4. CONTOL POWDER [Concomitant]
     Indication: Product used for unknown indication
     Dosage: UNK
     Route: 048
  5. PRANLUKAST DRYSYRUP [Concomitant]
     Indication: Product used for unknown indication
     Dosage: UNK
     Route: 048
  6. HERBAL NOS [Concomitant]
     Active Substance: HERBALS
     Indication: Product used for unknown indication
     Dosage: UNK
     Route: 065
  7. HERBALS [Concomitant]
     Active Substance: HERBALS
     Indication: Product used for unknown indication
     Dosage: UNK
     Route: 065
  8. DANTRIUM CAPSULES [Concomitant]
     Indication: Product used for unknown indication
     Dosage: UNK
     Route: 048
  9. MOVICOL LD [Concomitant]
     Indication: Product used for unknown indication
     Dosage: UNK
     Route: 065
  10. L-CARTIN ORAL SOLUTION [Concomitant]
     Indication: Product used for unknown indication
     Dosage: UNK
     Route: 048

REACTIONS (1)
  - Bradycardia [Recovering/Resolving]
